FAERS Safety Report 5474255-9 (Version None)
Quarter: 2007Q4

REPORT INFORMATION
  Report Type: 
  Country: None (occurrence: None)
  Receive Date: 20071002
  Receipt Date: 20070619
  Transmission Date: 20080405
  Serious: No
  Sender: FDA-Public Use
  Company Number: US-ASTRAZENECA-2007UW14609

PATIENT
  Age: 48 Year
  Sex: Female

DRUGS (3)
  1. ARIMIDEX [Suspect]
     Indication: BREAST CANCER
     Route: 048
  2. NOLVADEX [Concomitant]
     Route: 048
     Dates: start: 20020101
  3. FEMARA [Concomitant]

REACTIONS (6)
  - BACK PAIN [None]
  - DIARRHOEA [None]
  - HEADACHE [None]
  - HYPERTENSION [None]
  - OVARIAN DISORDER [None]
  - VISION BLURRED [None]
